FAERS Safety Report 20792171 (Version 3)
Quarter: 2022Q4

REPORT INFORMATION
  Report Type: Report from Study
  Country: CA (occurrence: CA)
  Receive Date: 20220505
  Receipt Date: 20221020
  Transmission Date: 20230113
  Serious: Yes (Other)
  Sender: FDA-Public Use
  Company Number: CA-JNJFOC-20220458591

PATIENT
  Age: 16 Year
  Sex: Male
  Weight: 92 kg

DRUGS (2)
  1. REMICADE [Suspect]
     Active Substance: INFLIXIMAB
     Indication: Crohn^s disease
     Route: 041
     Dates: start: 20110913
  2. REMICADE [Suspect]
     Active Substance: INFLIXIMAB
     Route: 041
     Dates: start: 20120606

REACTIONS (6)
  - Intentional self-injury [Unknown]
  - Infusion related reaction [Unknown]
  - Screaming [Unknown]
  - Agitation [Unknown]
  - Restlessness [Unknown]
  - Off label use [Unknown]

NARRATIVE: CASE EVENT DATE: 20120606
